FAERS Safety Report 10560052 (Version 2)
Quarter: 2014Q4

REPORT INFORMATION
  Report Type: Spontaneous
  Country: US (occurrence: None)
  Receive Date: 20141030
  Receipt Date: 20141031
  Transmission Date: 20150529
  Serious: Yes (Death, Hospitalization, Other)
  Sender: FDA-Public Use
  Company Number: 2014SGN01337

PATIENT
  Age: 61 Year
  Sex: Female

DRUGS (1)
  1. ADCETRIS [Suspect]
     Active Substance: BRENTUXIMAB VEDOTIN
     Indication: HODGKIN^S DISEASE
     Dates: start: 20140827

REACTIONS (19)
  - Nausea [None]
  - Arteriosclerosis coronary artery [None]
  - Uterine leiomyoma [None]
  - Uterine haemorrhage [None]
  - Type 2 diabetes mellitus [None]
  - Pulmonary fibrosis [None]
  - Pancreatitis [None]
  - Hepatic steatosis [None]
  - Vomiting [None]
  - Diarrhoea [None]
  - Dyspnoea [None]
  - Erosive oesophagitis [None]
  - Neutropenia [None]
  - Pneumonia [None]
  - Renal artery arteriosclerosis [None]
  - Pancreatic disorder [None]
  - Pleural fibrosis [None]
  - Sepsis [None]
  - Acute kidney injury [None]

NARRATIVE: CASE EVENT DATE: 20140927
